FAERS Safety Report 18065654 (Version 1)
Quarter: 2020Q3

REPORT INFORMATION
  Report Type: Spontaneous
  Country: TW (occurrence: TW)
  Receive Date: 20200724
  Receipt Date: 20200724
  Transmission Date: 20201103
  Serious: Yes (Death)
  Sender: FDA-Public Use
  Company Number: NVSC2020TW207731

PATIENT
  Age: 34 Year
  Sex: Female

DRUGS (1)
  1. METHYLPREDNISOLONE. [Suspect]
     Active Substance: METHYLPREDNISOLONE
     Indication: SYSTEMIC LUPUS ERYTHEMATOSUS
     Dosage: 500 MG, QD (9 DAYS AFTER PH)
     Route: 042

REACTIONS (2)
  - Pneumocystis jirovecii pneumonia [Fatal]
  - Pneumonia cytomegaloviral [Fatal]
